FAERS Safety Report 9283166 (Version 1)
Quarter: 2013Q2

REPORT INFORMATION
  Report Type: Spontaneous
  Country: US (occurrence: US)
  Receive Date: 20130510
  Receipt Date: 20130510
  Transmission Date: 20140414
  Serious: No
  Sender: FDA-Public Use
  Company Number: US-GLAXOSMITHKLINE-A0983813A

PATIENT
  Age: 39 Year
  Sex: Female

DRUGS (7)
  1. TYKERB [Suspect]
     Indication: BREAST CANCER
     Dosage: 1250MG PER DAY
     Route: 048
     Dates: start: 20111206
  2. VITAMIN C [Concomitant]
  3. FISH OIL [Concomitant]
  4. VITAMIN B12 [Concomitant]
  5. ZOLPIDEM [Concomitant]
  6. XELODA [Concomitant]
  7. ZOLOFT [Concomitant]

REACTIONS (5)
  - Headache [Unknown]
  - Weight increased [Unknown]
  - Dyspepsia [Unknown]
  - Nausea [Unknown]
  - Treatment noncompliance [Unknown]
